FAERS Safety Report 4279556-8 (Version None)
Quarter: 2004Q1

REPORT INFORMATION
  Report Type: 
  Country: None (occurrence: None)
  Receive Date: 20040123
  Receipt Date: 20030115
  Transmission Date: 20041129
  Serious: Yes (Other)
  Sender: FDA-Public Use
  Company Number: MEST003000150

PATIENT
  Age: 54 Year
  Sex: Male
  Weight: 76 kg

DRUGS (5)
  1. ROWASA [Suspect]
     Indication: COLITIS ULCERATIVE
     Dosage: SEE IMAGE
     Route: 048
     Dates: start: 19990101, end: 20000101
  2. ROWASA [Suspect]
     Indication: COLITIS ULCERATIVE
     Dosage: SEE IMAGE
     Route: 048
     Dates: start: 19990101, end: 20000101
  3. ROWASA [Suspect]
     Indication: COLITIS ULCERATIVE
     Dosage: SEE IMAGE
     Route: 048
     Dates: end: 20030101
  4. ROWASA [Suspect]
     Indication: COLITIS ULCERATIVE
     Dosage: SEE IMAGE
     Route: 048
     Dates: start: 20010101
  5. PERMIXON (SERENOA REPENS) [Concomitant]

REACTIONS (9)
  - BENIGN PROSTATIC HYPERPLASIA [None]
  - DRUG INEFFECTIVE [None]
  - DYSURIA [None]
  - GASTRIC DISORDER [None]
  - INFLAMMATION [None]
  - NAUSEA [None]
  - POLLAKIURIA [None]
  - RENAL CELL CARCINOMA STAGE UNSPECIFIED [None]
  - TESTICULAR DISORDER [None]
